FAERS Safety Report 21190960 (Version 2)
Quarter: 2022Q3

REPORT INFORMATION
  Report Type: Spontaneous
  Country: US (occurrence: US)
  Receive Date: 20220809
  Receipt Date: 20220810
  Transmission Date: 20221026
  Serious: No
  Sender: FDA-Public Use
  Company Number: US-PFIZER INC-202201041576

PATIENT
  Age: 75 Year
  Sex: Female

DRUGS (2)
  1. PAXLOVID [Suspect]
     Active Substance: NIRMATRELVIR\RITONAVIR
     Indication: COVID-19 treatment
     Dosage: UNK
  2. ZINC GLUCONATE [Concomitant]
     Active Substance: ZINC GLUCONATE
     Dosage: UNK

REACTIONS (8)
  - Dry throat [Unknown]
  - Dry mouth [Unknown]
  - Oral disorder [Unknown]
  - Oropharyngeal discomfort [Unknown]
  - Aptyalism [Unknown]
  - Fear [Unknown]
  - Dyspnoea [Unknown]
  - Throat tightness [Unknown]

NARRATIVE: CASE EVENT DATE: 20220804
